FAERS Safety Report 4685513-X (Version None)
Quarter: 2005Q2

REPORT INFORMATION
  Report Type: 
  Country: None (occurrence: None)
  Receive Date: 20050608
  Receipt Date: 20050523
  Transmission Date: 20051028
  Serious: Yes (Hospitalization, Disabling)
  Sender: FDA-Public Use
  Company Number: PHRM2005FR01611

PATIENT
  Age: 70 Year
  Sex: Male
  Weight: 89 kg

DRUGS (8)
  1. THALIDOMIDE [Concomitant]
     Indication: MULTIPLE MYELOMA
     Dosage: 400 MG DAILY
     Dates: start: 20020801
  2. DEXAMETHASONE [Concomitant]
  3. ZOMETA [Suspect]
     Indication: MULTIPLE MYELOMA
     Dosage: 4 MG, QMO
     Route: 042
     Dates: start: 20020401
  4. AREDIA [Suspect]
     Indication: MULTIPLE MYELOMA
     Route: 042
     Dates: start: 20011001, end: 20020301
  5. MELPHALAN [Suspect]
     Indication: MULTIPLE MYELOMA
     Dosage: UNK, UNK
     Route: 048
     Dates: start: 20011001, end: 20020401
  6. SOLUPRED [Suspect]
     Indication: MULTIPLE MYELOMA
     Dosage: 80 MG/D 5 D/WEEK
     Route: 048
  7. EPREX [Concomitant]
     Dates: start: 20011001
  8. NEORECORMON [Concomitant]
     Dates: start: 20020601

REACTIONS (5)
  - ASEPTIC NECROSIS BONE [None]
  - ATROPHY [None]
  - TOOTH DISORDER [None]
  - TOOTH EXTRACTION [None]
  - WOUND DEBRIDEMENT [None]
